FAERS Safety Report 12529725 (Version 3)
Quarter: 2024Q4

REPORT INFORMATION
  Report Type: Spontaneous
  Country: TW (occurrence: TW)
  Receive Date: 20160706
  Receipt Date: 20241108
  Transmission Date: 20250115
  Serious: Yes (Hospitalization, Other)
  Sender: ACCORD
  Company Number: None

PATIENT
  Age: 50 Year
  Sex: Female

DRUGS (5)
  1. DOCETAXEL [Suspect]
     Active Substance: DOCETAXEL
     Indication: Nasopharyngeal cancer recurrent
     Dosage: SINGLE 1-H INFUSION ON DAY 1
  2. FLUOROURACIL [Suspect]
     Active Substance: FLUOROURACIL
     Indication: Nasopharyngeal cancer recurrent
     Dosage: CONTINUOUS PUMP FROM DAY 1 TO DAY 4
  3. CISPLATIN [Suspect]
     Active Substance: CISPLATIN
     Indication: Nasopharyngeal cancer recurrent
     Dosage: SINGLE 6-HR INFUSION ON DAY 1
  4. DOCETAXEL [Suspect]
     Active Substance: DOCETAXEL
     Indication: Nasopharyngeal cancer recurrent
     Dosage: SINGLE 1-H INFUSION ON DAY 1
  5. FLUOROURACIL [Suspect]
     Active Substance: FLUOROURACIL
     Indication: Nasopharyngeal cancer recurrent
     Dosage: CONTINUOUS PUMP FROM DAY 1 TO DAY 4

REACTIONS (8)
  - Osmotic demyelination syndrome [Recovering/Resolving]
  - Hyponatraemia [Recovering/Resolving]
  - Febrile neutropenia [Recovering/Resolving]
  - Stomatitis [Unknown]
  - Hypokalaemia [Recovered/Resolved]
  - Hypomagnesaemia [Recovered/Resolved]
  - Hypocalcaemia [Recovered/Resolved]
  - Inappropriate antidiuretic hormone secretion [Unknown]

NARRATIVE: CASE EVENT DATE: 20140605
